FAERS Safety Report 5074175-8 (Version None)
Quarter: 2006Q3

REPORT INFORMATION
  Report Type: 
  Country: None (occurrence: None)
  Receive Date: 20060808
  Receipt Date: 20060628
  Transmission Date: 20061208
  Serious: Yes (Life-Threatening, Hospitalization)
  Sender: FDA-Public Use
  Company Number: GB-BRISTOL-MYERS SQUIBB COMPANY-13429485

PATIENT
  Age: 65 Year
  Sex: Male

DRUGS (6)
  1. REYATAZ [Suspect]
     Indication: HIV INFECTION
     Dates: start: 20051103, end: 20060619
  2. LAMIVUDINE [Concomitant]
     Indication: HIV INFECTION
     Dosage: DOSED INITIALLY AT 100 MG/DAY, THEN REDUCED TO 50 MG/DAY.
     Route: 048
  3. ABACAVIR [Concomitant]
     Route: 048
  4. ALLOPURINOL [Concomitant]
     Route: 048
  5. ALPHACALCIDOL [Concomitant]
     Indication: RENAL FAILURE CHRONIC
     Route: 048
  6. RITONAVIR [Concomitant]
     Route: 048

REACTIONS (1)
  - RENAL FAILURE CHRONIC [None]
